FAERS Safety Report 10794430 (Version 1)
Quarter: 2015Q1

REPORT INFORMATION
  Report Type: Spontaneous
  Country: US (occurrence: US)
  Receive Date: 20150213
  Receipt Date: 20150213
  Transmission Date: 20150721
  Serious: Yes (Death, Hospitalization, Other)
  Sender: FDA-Public Use
  Company Number: US-ASTRAZENECA-2015SE11991

PATIENT
  Age: 931 Month
  Sex: Female
  Weight: 67 kg

DRUGS (29)
  1. BYETTA [Suspect]
     Active Substance: EXENATIDE
     Indication: TYPE 2 DIABETES MELLITUS
     Route: 065
     Dates: start: 20140204
  2. EVISTA [Concomitant]
     Active Substance: RALOXIFENE HYDROCHLORIDE
     Route: 048
     Dates: start: 2003
  3. AVANDIA [Concomitant]
     Active Substance: ROSIGLITAZONE MALEATE
     Route: 048
     Dates: start: 20050621
  4. STARLIX [Concomitant]
     Active Substance: NATEGLINIDE
     Route: 048
     Dates: start: 20041118
  5. AMITRIPTYLINE [Concomitant]
     Active Substance: AMITRIPTYLINE
     Route: 048
     Dates: start: 20060212
  6. LOVENOX [Concomitant]
     Active Substance: ENOXAPARIN SODIUM
     Dosage: 80 MG/0.8 ML
     Dates: start: 20071217
  7. BYETTA [Suspect]
     Active Substance: EXENATIDE
     Indication: TYPE 2 DIABETES MELLITUS
     Route: 065
     Dates: start: 20061108
  8. FUROSEMIDE. [Concomitant]
     Active Substance: FUROSEMIDE
     Route: 048
  9. FUROSEMIDE. [Concomitant]
     Active Substance: FUROSEMIDE
     Route: 048
  10. CARDIZEM CD [Concomitant]
     Active Substance: DILTIAZEM HYDROCHLORIDE
     Route: 048
     Dates: start: 2002
  11. GLUCOVANCE [Concomitant]
     Active Substance: GLYBURIDE\METFORMIN HYDROCHLORIDE
     Dosage: 2.5/500 MG
     Route: 048
     Dates: start: 20020321
  12. MICARDIS HCT [Concomitant]
     Active Substance: HYDROCHLOROTHIAZIDE\TELMISARTAN
     Route: 048
     Dates: start: 20060212
  13. JANUVIA [Concomitant]
     Active Substance: SITAGLIPTIN PHOSPHATE
     Dates: start: 20101015
  14. BYETTA [Suspect]
     Active Substance: EXENATIDE
     Indication: TYPE 2 DIABETES MELLITUS
     Route: 065
     Dates: start: 20080215
  15. METFORMIN HCL [Concomitant]
     Active Substance: METFORMIN HYDROCHLORIDE
     Route: 048
  16. ULTRAM [Concomitant]
     Active Substance: TRAMADOL HYDROCHLORIDE
     Route: 048
     Dates: start: 20050717
  17. TOVIAZ [Concomitant]
     Active Substance: FESOTERODINE FUMARATE
     Dates: start: 20101015
  18. TOPROL XL [Concomitant]
     Active Substance: METOPROLOL SUCCINATE
     Route: 048
     Dates: start: 2002
  19. AVANDAMET [Concomitant]
     Active Substance: METFORMIN HYDROCHLORIDE\ROSIGLITAZONE MALEATE
     Dosage: 2/500
     Route: 048
     Dates: start: 2003
  20. BISACODYL. [Concomitant]
     Active Substance: BISACODYL
     Route: 048
     Dates: start: 20020128
  21. TRAMADOL HCL [Concomitant]
     Active Substance: TRAMADOL HYDROCHLORIDE
     Route: 048
  22. COUMADIN [Concomitant]
     Active Substance: WARFARIN SODIUM
     Route: 048
  23. DIOVAN HCT [Concomitant]
     Active Substance: HYDROCHLOROTHIAZIDE\VALSARTAN
     Dosage: 160/200 MG
     Route: 048
     Dates: start: 2002
  24. TRICOR [Concomitant]
     Active Substance: FENOFIBRATE
     Route: 048
     Dates: start: 2002
  25. METOCLOPRAMIDE. [Concomitant]
     Active Substance: METOCLOPRAMIDE
     Route: 048
     Dates: start: 20020128
  26. TELMISARTAN. [Concomitant]
     Active Substance: TELMISARTAN
     Route: 048
  27. MYLANTA GAS [Concomitant]
     Dates: start: 20020128
  28. PENICILLIN VK [Concomitant]
     Active Substance: PENICILLIN V POTASSIUM
     Route: 048
     Dates: start: 20050808
  29. TEKTURNA [Concomitant]
     Active Substance: ALISKIREN HEMIFUMARATE
     Route: 048
     Dates: start: 20080514

REACTIONS (12)
  - Acute pulmonary oedema [Unknown]
  - Chronic obstructive pulmonary disease [Unknown]
  - Spinal compression fracture [Unknown]
  - Cardiac failure congestive [Fatal]
  - Pancreatic carcinoma [Unknown]
  - Adenocarcinoma pancreas [Unknown]
  - Gallbladder disorder [Unknown]
  - Myocardial infarction [Fatal]
  - Humerus fracture [Unknown]
  - Fall [Unknown]
  - Atrial fibrillation [Unknown]
  - Cardiomyopathy [Fatal]

NARRATIVE: CASE EVENT DATE: 200710
